FAERS Safety Report 24887504 (Version 1)
Quarter: 2025Q1

REPORT INFORMATION
  Report Type: Spontaneous
  Country: GB (occurrence: GB)
  Receive Date: 20250127
  Receipt Date: 20250127
  Transmission Date: 20250408
  Serious: Yes (Other)
  Sender: BIOVITRUM
  Company Number: GB-BIOVITRUM-2025-GB-000907

PATIENT
  Sex: Female

DRUGS (1)
  1. ANAKINRA [Suspect]
     Active Substance: ANAKINRA
     Indication: Inflammatory bowel disease

REACTIONS (4)
  - Off label use [Recovered/Resolved]
  - Candida infection [Unknown]
  - Colitis ulcerative [Unknown]
  - Condition aggravated [Unknown]
